FAERS Safety Report 5384956-9 (Version None)
Quarter: 2007Q3

REPORT INFORMATION
  Report Type: 
  Country: None (occurrence: None)
  Receive Date: 20070709
  Receipt Date: 20070625
  Transmission Date: 20080115
  Serious: Yes (Hospitalization)
  Sender: FDA-Public Use
  Company Number: 156289USA

PATIENT
  Age: 53 Year
  Sex: Male

DRUGS (13)
  1. CLOZAPINE [Suspect]
     Indication: SCHIZOPHRENIA
     Dosage: (300 MG); ORAL
     Route: 048
     Dates: start: 20070418, end: 20070503
  2. SALBUTAMOL [Concomitant]
  3. IPRATROPIUM BROMIDE [Concomitant]
  4. NIRVAXAL [Concomitant]
  5. NADOLOL [Concomitant]
  6. PANTOPRAZOLE SODIUM [Concomitant]
  7. NICOTINE [Concomitant]
  8. POTASSIUM CHLORIDE [Concomitant]
  9. HYDROCHLOROTHIAZIDE [Concomitant]
  10. LISINOPRIL [Concomitant]
  11. MONTELUKAST SODIUM [Concomitant]
  12. OLANZAPINE [Concomitant]
  13. HALOPERIDOL [Concomitant]

REACTIONS (11)
  - BLOOD PRESSURE DIASTOLIC INCREASED [None]
  - DECREASED APPETITE [None]
  - DEPRESSED LEVEL OF CONSCIOUSNESS [None]
  - HALLUCINATION, AUDITORY [None]
  - HYPOTENSION [None]
  - HYPOVOLAEMIA [None]
  - NAUSEA [None]
  - ORAL INTAKE REDUCED [None]
  - RENAL FAILURE ACUTE [None]
  - SLEEP DISORDER [None]
  - VOMITING [None]
